FAERS Safety Report 12099821 (Version 1)
Quarter: 2016Q1

REPORT INFORMATION
  Report Type: Report from Study
  Country: US (occurrence: PE)
  Receive Date: 20160222
  Receipt Date: 20160222
  Transmission Date: 20160526
  Serious: Yes (Death)
  Sender: FDA-Public Use
  Company Number: US-AMNEAL PHARMACEUTICALS-2016AMN00113

PATIENT
  Age: 58 Year
  Sex: Male
  Weight: 83.9 kg

DRUGS (10)
  1. NEXIUM [Concomitant]
     Active Substance: ESOMEPRAZOLE MAGNESIUM
     Indication: PROPHYLAXIS
     Dosage: 20 MG, 1X/DAY
     Dates: start: 20080701, end: 20100828
  2. METFORMIN [Concomitant]
     Active Substance: METFORMIN HYDROCHLORIDE
     Indication: DIABETES MELLITUS
     Dosage: 850 MG, 1X/DAY
     Route: 048
     Dates: start: 20080727, end: 20100828
  3. ASPIRIN. [Concomitant]
     Active Substance: ASPIRIN
     Indication: PROPHYLAXIS
     Dosage: 100 MG, 1X/DAY
     Route: 048
     Dates: start: 20090908, end: 20100828
  4. NAPROXEN. [Suspect]
     Active Substance: NAPROXEN
     Indication: ARTHRITIS
     Dosage: 375 MG, 3X/DAY
     Route: 048
     Dates: start: 20080801, end: 20100828
  5. ENALAPRIL [Concomitant]
     Active Substance: ENALAPRIL
     Indication: HYPERTENSION
     Dosage: 10 MG, 1X/DAY
     Route: 048
     Dates: start: 2005, end: 20100828
  6. MICARDIS PLUS [Concomitant]
     Active Substance: HYDROCHLOROTHIAZIDE\TELMISARTAN
     Dosage: UNK
     Dates: start: 20090903, end: 20100828
  7. CELECOXIB. [Suspect]
     Active Substance: CELECOXIB
     Indication: ARTHRITIS
     Dosage: 1 DOSAGE UNITS, 3X/DAY
     Route: 048
     Dates: start: 20080801, end: 20100828
  8. IBUPROFEN. [Suspect]
     Active Substance: IBUPROFEN
  9. GLIBENCLAMIDE [Concomitant]
     Active Substance: GLYBURIDE
     Indication: DIABETES MELLITUS
     Dosage: 2.5 MG, 1X/DAY
     Route: 048
     Dates: start: 20081204, end: 20100828
  10. AMLODIPINE [Concomitant]
     Active Substance: AMLODIPINE BESYLATE
     Dosage: UNK
     Dates: start: 20090908, end: 20100828

REACTIONS (10)
  - Death [Fatal]
  - Dizziness [None]
  - Epistaxis [None]
  - Loss of consciousness [None]
  - Cerebrovascular accident [None]
  - Diabetes mellitus [None]
  - Vomiting [None]
  - Headache [None]
  - Syncope [None]
  - Respiratory failure [None]

NARRATIVE: CASE EVENT DATE: 20100828
